FAERS Safety Report 8011233-X (Version None)
Quarter: 2011Q4

REPORT INFORMATION
  Report Type: 
  Country: None (occurrence: None)
  Receive Date: 20111227
  Receipt Date: 20111227
  Transmission Date: 20120403
  Serious: Yes (Life-Threatening)
  Sender: FDA-Public Use
  Company Number: None

PATIENT
  Sex: Male
  Weight: 97.522 kg

DRUGS (1)
  1. NUCYNTA [Suspect]
     Indication: PAIN
     Dosage: ONE TABLET QID -100 MG-
     Route: 048
     Dates: start: 20111213, end: 20111213

REACTIONS (7)
  - INSOMNIA [None]
  - AGEUSIA [None]
  - LOSS OF CONSCIOUSNESS [None]
  - HYPERHIDROSIS [None]
  - GAIT DISTURBANCE [None]
  - HYPOTENSION [None]
  - SPEECH DISORDER [None]
